FAERS Safety Report 20771649 (Version 1)
Quarter: 2022Q2

REPORT INFORMATION
  Report Type: Spontaneous
  Country: GB (occurrence: GB)
  Receive Date: 20220430
  Receipt Date: 20220430
  Transmission Date: 20220721
  Serious: Yes (Other)
  Sender: FDA-Public Use
  Company Number: GB-MHRA-MED-202204190953535210-4U4G2

PATIENT
  Age: 41 Year
  Sex: Female
  Weight: 84 kg

DRUGS (1)
  1. FLUCONAZOLE [Suspect]
     Active Substance: FLUCONAZOLE
     Indication: Candida infection
     Dosage: UNK
     Route: 065

REACTIONS (4)
  - Eye swelling [Recovered/Resolved]
  - Paraesthesia [Recovered/Resolved]
  - Pharyngeal swelling [Recovered/Resolved]
  - Rash [Recovered/Resolved]
